FAERS Safety Report 8838968 (Version 1)
Quarter: 2012Q4

REPORT INFORMATION
  Report Type: Spontaneous
  Country: US (occurrence: None)
  Receive Date: 20121011
  Receipt Date: 20121011
  Transmission Date: 20130627
  Serious: Yes (Disabling)
  Sender: FDA-Public Use
  Company Number: None

PATIENT
  Age: 77 Year
  Sex: Male
  Weight: 103.87 kg

DRUGS (2)
  1. CARVEDILOL [Suspect]
     Indication: HEARTBEATS IRREGULAR
     Dosage: 1 tablet twice daily
     Dates: start: 20110715, end: 20121009
  2. LISINOPRIL [Suspect]
     Indication: HEARTBEATS IRREGULAR
     Dosage: 1 tablet once daily
     Dates: start: 20110715, end: 20111009

REACTIONS (3)
  - Sudden hearing loss [None]
  - Deafness unilateral [None]
  - Viral infection [None]
